FAERS Safety Report 24608902 (Version 2)
Quarter: 2024Q4

REPORT INFORMATION
  Report Type: Report from Study
  Country: US (occurrence: US)
  Receive Date: 20241112
  Receipt Date: 20241114
  Transmission Date: 20250115
  Serious: No
  Sender: KARYOPHARM THERAPEUTICS
  Company Number: US-KARYOPHARM-2024KPT001723

PATIENT
  Age: 63 Year
  Sex: Male

DRUGS (7)
  1. SELINEXOR [Suspect]
     Active Substance: SELINEXOR
     Indication: Glioblastoma
     Dosage: UNK
     Dates: start: 20240925, end: 20241022
  2. LOTEPREDNOL ETABONATE [Concomitant]
     Active Substance: LOTEPREDNOL ETABONATE
     Indication: Hypertension
     Dosage: 10-40 MG, QD
     Route: 048
     Dates: start: 20140101
  3. LEXAPRO [Concomitant]
     Active Substance: ESCITALOPRAM OXALATE
     Indication: Depression
     Dosage: 10 MG, QD, NIGHTLY
     Route: 048
     Dates: start: 202308
  4. GABAPENTIN [Concomitant]
     Active Substance: GABAPENTIN
     Indication: Neuropathy peripheral
     Dosage: 300 MG, QD, NIGHTLY
     Route: 048
     Dates: start: 202312
  5. LAMICTAL [Concomitant]
     Active Substance: LAMOTRIGINE
     Indication: Seizure
     Dosage: 25 MG, BID
     Route: 048
     Dates: start: 20240604
  6. KEPPRA [Concomitant]
     Active Substance: LEVETIRACETAM
     Indication: Seizure
     Dosage: 2000 MG, BID
     Route: 048
     Dates: start: 202307
  7. METFORMIN [Concomitant]
     Active Substance: METFORMIN HYDROCHLORIDE
     Indication: Diabetes mellitus
     Dosage: 1000 MG, BID
     Route: 048
     Dates: start: 202209

REACTIONS (3)
  - Confusional state [Recovering/Resolving]
  - Fatigue [Recovering/Resolving]
  - Glioblastoma [Unknown]

NARRATIVE: CASE EVENT DATE: 20240926
